FAERS Safety Report 15423833 (Version 1)
Quarter: 2018Q3

REPORT INFORMATION
  Report Type: Report from Study
  Country: AU (occurrence: AU)
  Receive Date: 20180925
  Receipt Date: 20180925
  Transmission Date: 20181010
  Serious: Yes (Other)
  Sender: FDA-Public Use
  Company Number: AU-MYLANLABS-2018M1068027

PATIENT
  Age: 5 Year
  Sex: Female

DRUGS (7)
  1. TEMOZOLOMIDE. [Suspect]
     Active Substance: TEMOZOLOMIDE
     Dosage: LEVEL 1 (CYCLE 3 AND 4)
     Route: 048
  2. TEMOZOLOMIDE. [Suspect]
     Active Substance: TEMOZOLOMIDE
     Dosage: LEVEL 2; CYCLE 5 AND 6
     Route: 048
  3. PEGFILGRASTIM [Concomitant]
     Active Substance: PEGFILGRASTIM
     Indication: BRAIN STEM GLIOMA
     Dosage: AT THE END OF EACH 5?DAY CYCLE OF CHEMOTHERAPY
     Route: 058
  4. TEMOZOLOMIDE. [Suspect]
     Active Substance: TEMOZOLOMIDE
     Dosage: LEVEL 3; CYCLE 7 AND 8
     Route: 048
  5. BUSULFAN. [Suspect]
     Active Substance: BUSULFAN
     Indication: PRODUCT USED FOR UNKNOWN INDICATION
     Dosage: FOR 2 DAYS (ON DAYS ?4 AND ?3 PRIOR TO CELL INFUSION)
     Route: 042
  6. O6?BENZYLGUANINE [Suspect]
     Active Substance: 6-O-BENZYLGUANINE
     Indication: BRAIN STEM GLIOMA
     Dosage: OVER 60 MIN
     Route: 041
  7. TEMOZOLOMIDE. [Suspect]
     Active Substance: TEMOZOLOMIDE
     Indication: BRAIN STEM GLIOMA
     Dosage: ADMINISTERED 30MIN AFTER BENZYLGUANINE (POST?INFUSION); LEVEL 0 (CYCLE 1 AND 2)
     Route: 048

REACTIONS (4)
  - Bone marrow failure [Unknown]
  - Neutropenia [Recovered/Resolved]
  - Tachypnoea [Unknown]
  - Blood disorder [Unknown]
